FAERS Safety Report 8445814 (Version 4)
Quarter: 2012Q4

REPORT INFORMATION
  Report Type: 
  Country: GB (occurrence: GB)
  Receive Date: 20120307
  Receipt Date: 20121119
  Transmission Date: 20130627
  Serious: Yes (Other)
  Sender: FDA-Public Use
  Company Number: GB-ALLERGAN-1202925US

PATIENT
  Age: 82 Year
  Sex: Male

DRUGS (1)
  1. OZURDEX [Suspect]
     Indication: CENTRAL RETINAL VEIN OCCLUSION
     Dosage: UNK
     Route: 031
     Dates: start: 20111219, end: 20111219

REACTIONS (2)
  - Visual acuity reduced [Unknown]
  - Endophthalmitis [Unknown]
